FAERS Safety Report 8593036-0 (Version None)
Quarter: 2012Q3

REPORT INFORMATION
  Report Type: 
  Country: None (occurrence: None)
  Receive Date: 20120814
  Receipt Date: 20120806
  Transmission Date: 20120928
  Serious: Yes (Hospitalization)
  Sender: FDA-Public Use
  Company Number: US-GLAXOSMITHKLINE-A0880393A

PATIENT
  Sex: Female
  Weight: 125 kg

DRUGS (1)
  1. AVANDIA [Suspect]
     Indication: TYPE 2 DIABETES MELLITUS

REACTIONS (3)
  - MYOCARDIAL INFARCTION [None]
  - MACULAR OEDEMA [None]
  - CARDIAC FAILURE CONGESTIVE [None]
